FAERS Safety Report 9330102 (Version 3)
Quarter: 2013Q3

REPORT INFORMATION
  Report Type: Spontaneous
  Country: DE (occurrence: DE)
  Receive Date: 20130604
  Receipt Date: 20130708
  Transmission Date: 20140515
  Serious: Yes (Hospitalization)
  Sender: FDA-Public Use
  Company Number: DE-PFIZER INC-2013167764

PATIENT
  Age: 74 Year
  Sex: Male
  Weight: 80 kg

DRUGS (1)
  1. SORTIS [Suspect]
     Indication: HYPERCHOLESTEROLAEMIA
     Dosage: 20 MG, ONCE DAILY
     Route: 048
     Dates: start: 201103

REACTIONS (3)
  - Road traffic accident [Unknown]
  - Cerebral haemorrhage [Recovered/Resolved]
  - Hemianopia homonymous [Unknown]
